FAERS Safety Report 15297688 (Version 4)
Quarter: 2019Q1

REPORT INFORMATION
  Report Type: Spontaneous
  Country: US (occurrence: US)
  Receive Date: 20180820
  Receipt Date: 20190308
  Transmission Date: 20190417
  Serious: Yes (Other)
  Sender: FDA-Public Use
  Company Number: US-PFIZER INC-2018329200

PATIENT
  Age: 53 Year
  Sex: Female
  Weight: 82.54 kg

DRUGS (3)
  1. CYTOMEL [Suspect]
     Active Substance: LIOTHYRONINE SODIUM
     Dosage: 8.33 MCG (1/3 OF THE PILL 2 TIMES DAILY ON TUESDAY, THURSDAY, SATURDAY AND SUNDAY)
     Route: 048
     Dates: start: 1992
  2. GAS RELIEF [Concomitant]
     Active Substance: DIMETHICONE
     Indication: FLATULENCE
     Dosage: 40 MG, AS NEEDED, (1/2 OF THE GAS RELIEF BUT CANNOT TAKE IT WITHIN 4 HOURS OF TAKING CYTOMEL)
  3. CYTOMEL [Suspect]
     Active Substance: LIOTHYRONINE SODIUM
     Indication: HYPOTHYROIDISM
     Dosage: 8.33 MCG (1/3 OF THE 25MCG TABLET 3 TIMES DAILY ON MON, WED, AND FRI)
     Route: 048
     Dates: start: 1992

REACTIONS (11)
  - Product colour issue [Unknown]
  - Lung disorder [Unknown]
  - Anaphylactic shock [Unknown]
  - Allergic reaction to excipient [Unknown]
  - Palpitations [Recovered/Resolved]
  - Urinary tract infection [Recovered/Resolved]
  - Lymphoma [Unknown]
  - Pulmonary oedema [Unknown]
  - Throat tightness [Unknown]
  - Weight decreased [Unknown]
  - Piloerection [Unknown]

NARRATIVE: CASE EVENT DATE: 1993
